FAERS Safety Report 12648333 (Version 1)
Quarter: 2016Q3

REPORT INFORMATION
  Report Type: Spontaneous
  Country: GB (occurrence: GB)
  Receive Date: 20160812
  Receipt Date: 20160812
  Transmission Date: 20161109
  Serious: Yes (Other)
  Sender: FDA-Public Use
  Company Number: GB-TEVA-683060ACC

PATIENT
  Age: 66 Year
  Sex: Female
  Weight: 95 kg

DRUGS (12)
  1. CITALOPRAM [Concomitant]
     Active Substance: CITALOPRAM HYDROBROMIDE
     Dosage: 1 DOSAGE FORMS DAILY; AT NIGHT
     Dates: start: 20150310
  2. CANDESARTAN [Concomitant]
     Active Substance: CANDESARTAN
     Dosage: 1 DOSAGE FORMS DAILY;
     Dates: start: 20150310
  3. DOCUSATE SODIUM. [Concomitant]
     Active Substance: DOCUSATE SODIUM
     Dosage: 4 DOSAGE FORMS DAILY;
     Dates: start: 20150908
  4. LANSOPRAZOLE. [Concomitant]
     Active Substance: LANSOPRAZOLE
     Dosage: 1 DOSAGE FORMS DAILY;
     Dates: start: 20150310
  5. SIMVASTATIN. [Concomitant]
     Active Substance: SIMVASTATIN
     Dosage: 1 DOSAGE FORMS DAILY; AT NIGHT
     Dates: start: 20150310
  6. FOLIC ACID. [Concomitant]
     Active Substance: FOLIC ACID
     Dosage: 1 DOSAGE FORMS DAILY; NOT ON DAY TAKES METHOTREXATE
     Dates: start: 20150310
  7. DOXAZOSIN [Concomitant]
     Active Substance: DOXAZOSIN\DOXAZOSIN MESYLATE
     Dosage: 1 DOSAGE FORMS DAILY;
     Dates: start: 20150310
  8. QUININE [Concomitant]
     Active Substance: QUININE
     Dosage: 1 - 2 AT NIGHT
     Dates: start: 20150310
  9. CELECOXIB. [Suspect]
     Active Substance: CELECOXIB
     Dates: start: 20160118
  10. ADALAT [Concomitant]
     Active Substance: NIFEDIPINE
     Dosage: 2 DOSAGE FORMS DAILY;
     Dates: start: 20150310
  11. DIHYDROCODEINE [Concomitant]
     Active Substance: DIHYDROCODEINE
     Dosage: 1 - 2 EVERY 2 - 6 HOURS
     Dates: start: 20150310
  12. METHOTREXATE. [Concomitant]
     Active Substance: METHOTREXATE
     Dates: start: 20150310

REACTIONS (2)
  - Aphasia [Unknown]
  - Confusional state [Recovering/Resolving]

NARRATIVE: CASE EVENT DATE: 20160725
